FAERS Safety Report 7996788 (Version 2)
Quarter: 2012Q4

REPORT INFORMATION
  Report Type: 
  Country: CA (occurrence: CA)
  Receive Date: 20110617
  Receipt Date: 20121107
  Transmission Date: 20130627
  Serious: Yes (Other)
  Sender: FDA-Public Use
  Company Number: PHHY2008CA00538

PATIENT
  Sex: Female

DRUGS (1)
  1. SANDOSTATIN LAR [Suspect]
     Indication: METASTASES TO RECTUM
     Dosage: 20 mg, QMO
     Route: 030
     Dates: start: 20071105

REACTIONS (9)
  - Phlebitis [Unknown]
  - Metastases to rectum [Unknown]
  - Hypotension [Unknown]
  - Pain [Unknown]
  - Weight increased [Unknown]
  - Diarrhoea [Recovering/Resolving]
  - Asthenia [Unknown]
  - Fatigue [Recovering/Resolving]
  - Drug ineffective [Unknown]
